FAERS Safety Report 11812990 (Version 1)
Quarter: 2015Q4

REPORT INFORMATION
  Report Type: Spontaneous
  Country: DE (occurrence: DE)
  Receive Date: 20151209
  Receipt Date: 20151209
  Transmission Date: 20160305
  Serious: Yes (Other)
  Sender: FDA-Public Use
  Company Number: DE-ACTELION-A-CH2015-127989

PATIENT
  Sex: Female

DRUGS (2)
  1. ZANTAC [Concomitant]
     Active Substance: RANITIDINE HYDROCHLORIDE
     Route: 048
  2. TRACLEER [Suspect]
     Active Substance: BOSENTAN
     Indication: SYSTEMIC SCLEROSIS
     Route: 048

REACTIONS (1)
  - Lip and/or oral cavity cancer [Unknown]
